FAERS Safety Report 17966413 (Version 1)
Quarter: 2020Q3

REPORT INFORMATION
  Report Type: Spontaneous
  Country: CN (occurrence: CN)
  Receive Date: 20200630
  Receipt Date: 20200630
  Transmission Date: 20201104
  Serious: Yes (Hospitalization, Other)
  Sender: FDA-Public Use
  Company Number: CN-009507513-2006CHN010001

PATIENT
  Sex: Male

DRUGS (3)
  1. PACLITAXEL ALBUMIN [Suspect]
     Active Substance: PACLITAXEL
     Indication: NON-SMALL CELL LUNG CANCER
     Dosage: 300MG D1 Q3W
  2. KEYTRUDA [Suspect]
     Active Substance: PEMBROLIZUMAB
     Indication: NON-SMALL CELL LUNG CANCER
     Dosage: 200 MILLIGRAM, Q3W
     Dates: start: 201810
  3. CATEQUENTINIB. [Suspect]
     Active Substance: CATEQUENTINIB
     Indication: NON-SMALL CELL LUNG CANCER
     Dosage: UNK
     Dates: start: 201909, end: 202003

REACTIONS (8)
  - Productive cough [Unknown]
  - Malignant neoplasm progression [Unknown]
  - Ill-defined disorder [Unknown]
  - Dysphonia [Unknown]
  - Pyrexia [Unknown]
  - Biliary colic [Recovered/Resolved]
  - Toxicity to various agents [Unknown]
  - Oropharyngeal pain [Unknown]
